FAERS Safety Report 15552215 (Version 2)
Quarter: 2018Q4

REPORT INFORMATION
  Report Type: Spontaneous
  Country: US (occurrence: US)
  Receive Date: 20181025
  Receipt Date: 20181206
  Transmission Date: 20190205
  Serious: Yes (Hospitalization, Other)
  Sender: FDA-Public Use
  Company Number: US-ELI_LILLY_AND_COMPANY-US201810010959

PATIENT
  Sex: Male

DRUGS (3)
  1. OLANZAPINE. [Suspect]
     Active Substance: OLANZAPINE
     Indication: MENTAL DISORDER
     Dosage: UNK, UNKNOWN
     Route: 065
  2. DEPAKOTE [Concomitant]
     Active Substance: DIVALPROEX SODIUM
     Indication: MANIA
  3. ZYPREXA [Suspect]
     Active Substance: OLANZAPINE
     Indication: MENTAL DISORDER
     Dosage: 10 MG, UNKNOWN
     Route: 065

REACTIONS (10)
  - Malaise [Unknown]
  - Psychotic disorder [Unknown]
  - Insomnia [Unknown]
  - Psychological trauma [Unknown]
  - Obesity [Unknown]
  - Hypersomnia [Unknown]
  - Aggression [Unknown]
  - Agitation [Unknown]
  - Tachyphrenia [Unknown]
  - Withdrawal syndrome [Not Recovered/Not Resolved]
